FAERS Safety Report 20883990 (Version 2)
Quarter: 2022Q2

REPORT INFORMATION
  Report Type: Report from Study
  Country: NL (occurrence: None)
  Receive Date: 20220527
  Receipt Date: 20220616
  Transmission Date: 20220721
  Serious: Yes (Death, Hospitalization)
  Sender: FDA-Public Use
  Company Number: NL-ROCHE-2863436

PATIENT
  Age: 72 Year
  Sex: Female
  Weight: 62.2 kg

DRUGS (15)
  1. TIRAGOLUMAB [Suspect]
     Active Substance: TIRAGOLUMAB
     Indication: Small cell lung cancer extensive stage
     Dosage: ON 02/MAR/2022 START DATE OF MOST RECENT DOSE OF BLINDED TIRAGOLUMAB PRIOR TO AE
     Route: 042
     Dates: start: 20210224
  2. CARBOPLATIN [Suspect]
     Active Substance: CARBOPLATIN
     Indication: Small cell lung cancer extensive stage
     Dosage: ON 14/MAY/2021 SHE RECEIVED MOST RECENT DOSE OF CARBOPLATIN PRIOR TO AE?DOSE LAST STUDY DRUG ADMIN P
     Route: 042
     Dates: start: 20210224
  3. ETOPOSIDE [Suspect]
     Active Substance: ETOPOSIDE
     Indication: Small cell lung cancer extensive stage
     Dosage: ON 14/MAY/2021 SHE RECEIVED MOST RECENT DOSE OF ETOPOSIDE PRIOR TO AE?DOSE LAST STUDY DRUG ADMIN PRI
     Route: 042
     Dates: start: 20210224
  4. ATEZOLIZUMAB [Suspect]
     Active Substance: ATEZOLIZUMAB
     Indication: Small cell lung cancer extensive stage
     Dosage: ON 02/MAR/2022, SHE RECEIVED MOST RECENT DOSE OF STUDY ATEZOLIZUMAB TO AE?DOSE LAST STUDY DRUG ADMIN
     Route: 041
     Dates: start: 20210224
  5. ALBUTEROL [Concomitant]
     Active Substance: ALBUTEROL
     Indication: Chronic obstructive pulmonary disease
  6. OXYCODONE [Concomitant]
     Active Substance: OXYCODONE
     Indication: Arthralgia
  7. CITALOPRAM [Concomitant]
     Active Substance: CITALOPRAM HYDROBROMIDE
  8. LACTULOSE [Concomitant]
     Active Substance: LACTULOSE
     Route: 048
     Dates: start: 20210224
  9. NICOTINE [Concomitant]
     Active Substance: NICOTINE
     Indication: Ex-tobacco user
     Route: 062
     Dates: start: 20220424
  10. METOCLOPRAMIDE [Concomitant]
     Active Substance: METOCLOPRAMIDE
     Indication: Nausea
     Route: 042
     Dates: start: 20220424
  11. LEVOTHYROXINE [Concomitant]
     Active Substance: LEVOTHYROXINE
     Indication: Hypothyroidism
     Dates: start: 20210609
  12. PANTOPRAZOLE [Concomitant]
     Active Substance: PANTOPRAZOLE
  13. ACETAMINOPHEN [Concomitant]
     Active Substance: ACETAMINOPHEN
     Indication: Neck pain
     Dates: start: 20210602
  14. POTASSIUM CHLORIDE [Concomitant]
     Active Substance: POTASSIUM CHLORIDE
     Indication: Blood potassium decreased
     Dates: start: 20210602
  15. CIPROFLOXACIN [Concomitant]
     Active Substance: CIPROFLOXACIN
     Indication: Blood potassium decreased
     Dates: start: 20210602

REACTIONS (5)
  - Chronic obstructive pulmonary disease [Recovered/Resolved]
  - Anxiety [Recovered/Resolved]
  - Pneumonia [Recovered/Resolved]
  - Chronic obstructive pulmonary disease [Recovered/Resolved]
  - Dyspnoea [Fatal]

NARRATIVE: CASE EVENT DATE: 20210316
